FAERS Safety Report 7543969-9 (Version None)
Quarter: 2011Q2

REPORT INFORMATION
  Report Type: 
  Country: None (occurrence: None)
  Receive Date: 20110613
  Receipt Date: 20041015
  Transmission Date: 20111010
  Serious: Yes (Hospitalization)
  Sender: FDA-Public Use
  Company Number: PHHO2004JP09631

PATIENT
  Sex: Male

DRUGS (4)
  1. DIOVAN [Suspect]
     Indication: HYPERTENSION
     Dosage: 80 MG / DAY
     Route: 048
     Dates: start: 20030111, end: 20040204
  2. METHYCOBAL [Concomitant]
     Indication: NEUROPATHY PERIPHERAL
  3. PROMAC [Concomitant]
     Indication: GASTRITIS
  4. LENDORMIN [Concomitant]
     Indication: INSOMNIA

REACTIONS (4)
  - NAUSEA [None]
  - VOMITING [None]
  - CEREBELLAR INFARCTION [None]
  - DIZZINESS [None]
